FAERS Safety Report 4975318-4 (Version None)
Quarter: 2006Q2

REPORT INFORMATION
  Report Type: 
  Country: None (occurrence: None)
  Receive Date: 20060418
  Receipt Date: 20051005
  Transmission Date: 20061013
  Serious: Yes (Hospitalization, Other)
  Sender: FDA-Public Use
  Company Number: US-MERCK-0510USA04265

PATIENT
  Age: 69 Year
  Sex: Male
  Weight: 80 kg

DRUGS (6)
  1. VIOXX [Suspect]
     Indication: ARTHRALGIA
     Route: 048
     Dates: start: 19990101
  2. VIOXX [Suspect]
     Route: 048
     Dates: start: 20000201, end: 20040820
  3. VIOXX [Suspect]
     Route: 048
     Dates: start: 20000201, end: 20000201
  4. VIOXX [Suspect]
     Indication: OSTEOARTHRITIS
     Route: 048
     Dates: start: 19990101
  5. VIOXX [Suspect]
     Route: 048
     Dates: start: 20000201, end: 20040820
  6. VIOXX [Suspect]
     Route: 048
     Dates: start: 20000201, end: 20000201

REACTIONS (6)
  - BUTTOCK PAIN [None]
  - CORONARY ARTERY OCCLUSION [None]
  - FALL [None]
  - ISCHAEMIA [None]
  - MUSCULOSKELETAL DISCOMFORT [None]
  - MYOCARDIAL INFARCTION [None]
